FAERS Safety Report 4309723-6 (Version None)
Quarter: 2004Q1

REPORT INFORMATION
  Report Type: 
  Country: None (occurrence: None)
  Receive Date: 20040301
  Receipt Date: 20040223
  Transmission Date: 20041129
  Serious: Yes (Hospitalization)
  Sender: FDA-Public Use
  Company Number: US-JNJFOC-20040205155

PATIENT
  Age: 65 Year
  Sex: Female

DRUGS (13)
  1. INFLIXIMAB (INFLIXIMAB, RECOMBINANT) LYOPHILIZED POWDER [Suspect]
     Indication: RHEUMATOID ARTHRITIS
     Dosage: INTRAVENOUS
     Route: 042
     Dates: start: 20000126, end: 20030827
  2. DELTAZONE (ARTICAINE HYDROCHLORIDE) [Concomitant]
  3. DARVOCET (PROPACET) [Concomitant]
  4. VALIUM [Concomitant]
  5. TYLENOL [Concomitant]
  6. METHOTREXATE [Concomitant]
  7. MULTIVITAMIN (MULTIVITAMINS) [Concomitant]
  8. CARDURA [Concomitant]
  9. HYDROCHLOROTHIAZIDE [Concomitant]
  10. CHLORTHALIDONE [Concomitant]
  11. POTASSIUM (POTASSIUM) [Concomitant]
  12. CALCIUM (CALCIUM) [Concomitant]
  13. PREMARIN [Concomitant]

REACTIONS (3)
  - POSTOPERATIVE INFECTION [None]
  - SKIN INFECTION [None]
  - TOE AMPUTATION [None]
